FAERS Safety Report 22332709 (Version 7)
Quarter: 2025Q4

REPORT INFORMATION
  Report Type: Report from Study
  Country: CA (occurrence: None)
  Receive Date: 20230517
  Receipt Date: 20251119
  Transmission Date: 20260118
  Serious: Yes (Other)
  Sender: UCB
  Company Number: CA-UCBSA-2023023158

PATIENT
  Age: 49 Year

DRUGS (3)
  1. CERTOLIZUMAB PEGOL [Suspect]
     Active Substance: CERTOLIZUMAB PEGOL
     Indication: Ankylosing spondylitis
     Dosage: 400 MILLIGRAM, EV 2 WEEKS(QOW)
  2. CERTOLIZUMAB PEGOL [Suspect]
     Active Substance: CERTOLIZUMAB PEGOL
     Dosage: 200 MILLIGRAM, EV 2 WEEKS(QOW)
  3. CERTOLIZUMAB PEGOL [Suspect]
     Active Substance: CERTOLIZUMAB PEGOL
     Dosage: 200 MILLIGRAM, EV 2 WEEKS(QOW)

REACTIONS (13)
  - Arthritis [Recovered/Resolved]
  - Psoriatic arthropathy [Unknown]
  - Diarrhoea [Recovering/Resolving]
  - Injection site swelling [Unknown]
  - Injection site vesicles [Unknown]
  - Injection site mass [Recovered/Resolved]
  - Back pain [Recovering/Resolving]
  - General physical health deterioration [Unknown]
  - Gastrooesophageal reflux disease [Unknown]
  - Pain [Unknown]
  - Immune system disorder [Unknown]
  - Incorrect dose administered [Unknown]
  - Drug ineffective [Unknown]
